FAERS Safety Report 9438061 (Version 3)
Quarter: 2013Q3

REPORT INFORMATION
  Report Type: Report from Study
  Country: DE (occurrence: DE)
  Receive Date: 20130802
  Receipt Date: 20130906
  Transmission Date: 20140515
  Serious: Yes (Hospitalization)
  Sender: FDA-Public Use
  Company Number: DE-ABBOTT-13P-062-1125260-00

PATIENT
  Age: 43 Year
  Sex: Female
  Weight: 97 kg

DRUGS (6)
  1. HUMIRA [Suspect]
     Indication: CROHN^S DISEASE
     Route: 058
     Dates: start: 20120630, end: 20130218
  2. HUMIRA [Suspect]
     Dates: start: 20130618, end: 20130716
  3. REMICADE [Suspect]
     Indication: CROHN^S DISEASE
     Dates: start: 20130225, end: 20130313
  4. PREDNISOLONE [Concomitant]
     Indication: CROHN^S DISEASE
     Dates: start: 2000
  5. PENTASA [Concomitant]
     Indication: CROHN^S DISEASE
     Dates: start: 200007
  6. BUDENOFALK [Concomitant]
     Indication: CROHN^S DISEASE
     Dates: start: 200007

REACTIONS (4)
  - Dysphagia [Not Recovered/Not Resolved]
  - Arthralgia [Recovered/Resolved]
  - Alopecia [Not Recovered/Not Resolved]
  - Spondylitis [Recovered/Resolved]
